FAERS Safety Report 9931897 (Version 2)
Quarter: 2014Q1

REPORT INFORMATION
  Report Type: Spontaneous
  Country: US (occurrence: US)
  Receive Date: 20140228
  Receipt Date: 20140317
  Transmission Date: 20141002
  Serious: Yes (Death)
  Sender: FDA-Public Use
  Company Number: US-ASTELLAS-2014US002079

PATIENT
  Sex: Female

DRUGS (2)
  1. TARCEVA [Suspect]
     Indication: LUNG NEOPLASM MALIGNANT
     Dosage: 150, UID/QD
     Route: 048
     Dates: start: 20130410
  2. TARCEVA [Suspect]
     Indication: ADENOCARCINOMA
     Dosage: 125 MG, UID/QD
     Route: 048
     Dates: start: 20131005, end: 20140115

REACTIONS (1)
  - Lung neoplasm malignant [Fatal]
